FAERS Safety Report 9165210 (Version 3)
Quarter: 2013Q3

REPORT INFORMATION
  Report Type: Spontaneous
  Country: MX (occurrence: MX)
  Receive Date: 20130315
  Receipt Date: 20130826
  Transmission Date: 20140515
  Serious: Yes (Hospitalization, Other)
  Sender: FDA-Public Use
  Company Number: MX-ELI_LILLY_AND_COMPANY-MX201303002951

PATIENT
  Age: 52 Year
  Sex: Male

DRUGS (3)
  1. CIALIS [Suspect]
     Dosage: 20 MG, 2/W
     Route: 048
     Dates: start: 2012
  2. MEFORMIN [Concomitant]
     Dosage: 1 DF, UNKNOWN
  3. THIOCTIC ACID [Concomitant]
     Indication: DIABETIC NEUROPATHY
     Dosage: 1 DF, UNKNOWN

REACTIONS (5)
  - Ocular ischaemic syndrome [Recovered/Resolved]
  - Cranial nerve paralysis [Recovered/Resolved]
  - Neuropathy peripheral [Recovered/Resolved]
  - Diabetes mellitus inadequate control [Recovered/Resolved]
  - Headache [Recovered/Resolved]
